FAERS Safety Report 25097018 (Version 1)
Quarter: 2025Q1

REPORT INFORMATION
  Report Type: Spontaneous
  Country: US (occurrence: US)
  Receive Date: 20250319
  Receipt Date: 20250319
  Transmission Date: 20250409
  Serious: No
  Sender: JOHNSON AND JOHNSON
  Company Number: US-JNJFOC-20250311859

PATIENT
  Age: 61 Year
  Sex: Female
  Weight: 72 kg

DRUGS (15)
  1. LAZCLUZE [Suspect]
     Active Substance: LAZERTINIB
     Indication: Lung neoplasm malignant
     Route: 048
     Dates: start: 20241002
  2. Acidophilus Lactobacillus Oral [Concomitant]
     Indication: Product used for unknown indication
  3. Ascorbic Acid Oral [Concomitant]
     Indication: Product used for unknown indication
  4. Berberine Complex Oral [Concomitant]
     Indication: Product used for unknown indication
  5. Biotin Oral [Concomitant]
     Indication: Product used for unknown indication
  6. Caltrate 600+D Plus Minerals Oral [Concomitant]
     Indication: Product used for unknown indication
  7. Cyanocobalamin Injection Solution [Concomitant]
     Indication: Product used for unknown indication
  8. DEXAMETHASONE [Concomitant]
     Active Substance: DEXAMETHASONE
     Indication: Product used for unknown indication
  9. Eliquis Oral [Concomitant]
     Indication: Product used for unknown indication
  10. Lovaza Oral Capsule [Concomitant]
     Indication: Product used for unknown indication
  11. Readi-Cat 2 Oral Suspension [Concomitant]
     Indication: Product used for unknown indication
  12. Rybrevant Intravenous [Concomitant]
     Indication: Product used for unknown indication
  13. Turmeric Oral [Concomitant]
     Indication: Product used for unknown indication
  14. Vitamin D3 Oral Capsule [Concomitant]
     Indication: Product used for unknown indication
  15. Zinc Sulfate Oral Capsule [Concomitant]
     Indication: Product used for unknown indication

REACTIONS (2)
  - Rash [Not Recovered/Not Resolved]
  - Paraesthesia [Not Recovered/Not Resolved]
